FAERS Safety Report 14364259 (Version 4)
Quarter: 2018Q2

REPORT INFORMATION
  Report Type: Report from Study
  Country: JP (occurrence: JP)
  Receive Date: 20180108
  Receipt Date: 20180405
  Transmission Date: 20180711
  Serious: Yes (Hospitalization)
  Sender: FDA-Public Use
  Company Number: JP-EISAI MEDICAL RESEARCH-EC-2018-034881

PATIENT
  Age: 43 Year
  Sex: Male
  Weight: 65 kg

DRUGS (6)
  1. LYRICA OD [Concomitant]
  2. TRANSAMIN [Concomitant]
     Active Substance: TRANEXAMIC ACID
  3. ERIBULIN [Suspect]
     Active Substance: ERIBULIN
     Indication: PARAGANGLION NEOPLASM
     Route: 041
     Dates: start: 20171205, end: 20171226
  4. CARBAZOCHROME SULFONATE NA [Concomitant]
  5. LOXOPROFEN [Concomitant]
     Active Substance: LOXOPROFEN
  6. OXYCODONE [Concomitant]
     Active Substance: OXYCODONE

REACTIONS (1)
  - Haemoptysis [Recovered/Resolved]

NARRATIVE: CASE EVENT DATE: 20180101
